FAERS Safety Report 19730026 (Version 1)
Quarter: 2021Q3

REPORT INFORMATION
  Report Type: Spontaneous
  Country: DE (occurrence: DE)
  Receive Date: 20210820
  Receipt Date: 20210820
  Transmission Date: 20211014
  Serious: Yes (Hospitalization)
  Sender: FDA-Public Use
  Company Number: DE-TEVA-2021-DE-1942938

PATIENT
  Age: 69 Year
  Sex: Male

DRUGS (13)
  1. BACLOFEN. [Suspect]
     Active Substance: BACLOFEN
     Dosage: 2 DOSAGE FORMS DAILY; 10 MG, 0?0?0?2
     Route: 048
  2. METFORMIN [Concomitant]
     Active Substance: METFORMIN HYDROCHLORIDE
     Dosage: 2000 MILLIGRAM DAILY; 1000 MG, 1?0?1?0
     Route: 048
  3. INSULIN ASPART [Concomitant]
     Active Substance: INSULIN ASPART
     Dosage: 1 IU, AS NEEDED, PRE?FILLED SYRINGES
     Route: 058
  4. ATORVASTATIN [Concomitant]
     Active Substance: ATORVASTATIN
     Dosage: 10 MILLIGRAM DAILY; 10 MG, 0?0?1?0
     Route: 048
  5. FAMPRIDIN [Suspect]
     Active Substance: DALFAMPRIDINE
     Dosage: 20 MILLIGRAM DAILY; 10 MG, 1?0?1?0
     Route: 048
  6. SATIVEX SPRAY ZUR ANWENDUNG IN DER MUNDHOHLE [Concomitant]
     Dosage: SPRAY FOR USE IN THE ORAL CAVITY, 2.7 | 2.5 MG, 2?2?4?0, DOSAGE SPRAY
     Route: 049
  7. INSULIN HUMAN INJECTION, ISOPHANE [Concomitant]
     Active Substance: INSULIN HUMAN
     Dosage: 1 IU, 0?0?10?0, PRE?FILLED SYRINGES
     Route: 058
  8. PANTOPRAZOL [Concomitant]
     Active Substance: PANTOPRAZOLE SODIUM
     Dosage: 20 MILLIGRAM DAILY; 20 MG, 1?0?0?0
     Route: 048
  9. CERTOPARIN [Concomitant]
     Active Substance: CERTOPARIN SODIUM
     Dosage: 3000 IU (INTERNATIONAL UNIT) DAILY; 0?0?1?0, PRE?FILLED SYRINGES
     Route: 058
  10. PREGABALIN. [Concomitant]
     Active Substance: PREGABALIN
     Dosage: 100 MG, 1?1?0?2
     Route: 048
  11. TORASEMID [Concomitant]
     Active Substance: TORSEMIDE
     Dosage: 1 DOSAGE FORMS DAILY; 10 MG, 0.5?0.5?0?0
     Route: 048
  12. METHYLPREDNISOLON [Suspect]
     Active Substance: METHYLPREDNISOLONE
     Dosage: 500 MG, ACCORDING TO THE SCHEME
     Route: 065
  13. LEVOTHYROXINE SODIUM. [Concomitant]
     Active Substance: LEVOTHYROXINE SODIUM
     Dosage: 25 MICROGRAM DAILY; 1?0?0?0
     Route: 048

REACTIONS (3)
  - Pyrexia [Unknown]
  - Haematuria [Unknown]
  - General physical health deterioration [Unknown]
